FAERS Safety Report 5127467-8 (Version None)
Quarter: 2006Q4

REPORT INFORMATION
  Report Type: 
  Country: None (occurrence: None)
  Receive Date: 20061013
  Receipt Date: 20061013
  Transmission Date: 20070319
  Serious: No
  Sender: FDA-Public Use
  Company Number: None

PATIENT
  Sex: Male
  Weight: 95.9 kg

DRUGS (10)
  1. IRINOTECAN HCL [Suspect]
     Indication: OLIGODENDROGLIOMA
     Dosage: 274MG IV (DAY 1,8,22 AND 29)
     Route: 042
     Dates: start: 20060821
  2. IRINOTECAN HCL [Suspect]
     Indication: OLIGODENDROGLIOMA
     Dosage: 274MG IV (DAY 1,8,22 AND 29)
     Route: 042
     Dates: start: 20060828
  3. IRINOTECAN HCL [Suspect]
     Indication: OLIGODENDROGLIOMA
     Dosage: 274MG IV (DAY 1,8,22 AND 29)
     Route: 042
     Dates: start: 20060911
  4. IRINOTECAN HCL [Suspect]
     Indication: OLIGODENDROGLIOMA
     Dosage: 274MG IV (DAY 1,8,22 AND 29)
     Route: 042
     Dates: start: 20060918
  5. BEVACIZUMAB [Suspect]
     Indication: OLIGODENDROGLIOMA
     Dosage: 1439MG IV (DAY 1 AND 22)
     Route: 042
     Dates: start: 20060821
  6. KEPPRA [Concomitant]
  7. AMBIEN [Concomitant]
  8. FLOMAX [Concomitant]
  9. SENOKOT [Concomitant]
  10. COLACE [Concomitant]

REACTIONS (4)
  - ACTIVATED PARTIAL THROMBOPLASTIN TIME ABNORMAL [None]
  - DEEP VEIN THROMBOSIS [None]
  - EMBOLISM [None]
  - PROTHROMBIN TIME ABNORMAL [None]
